FAERS Safety Report 8722694 (Version 2)
Quarter: 2021Q2

REPORT INFORMATION
  Report Type: Spontaneous
  Country: BR (occurrence: BR)
  Receive Date: 20120814
  Receipt Date: 20210511
  Transmission Date: 20210717
  Serious: Yes (Other)
  Sender: FDA-Public Use
  Company Number: BR-ROCHE-1095066

PATIENT
  Age: 33 Year
  Sex: Female
  Weight: 87 kg

DRUGS (5)
  1. LISADOR [Concomitant]
     Active Substance: DIPYRONE\PROMETHAZINE HYDROCHLORIDE
     Route: 048
  2. VICTRELIS [Suspect]
     Active Substance: BOCEPREVIR
     Indication: HEPATITIS C
     Dosage: 12 TABLETS PER DAY
     Route: 048
     Dates: start: 20120707
  3. RIBAVIRIN. [Concomitant]
     Active Substance: RIBAVIRIN
     Indication: HEPATITIS C
     Route: 048
     Dates: start: 201206
  4. DRAMIN [Concomitant]
     Active Substance: DIMENHYDRINATE
     Route: 048
  5. PEGASYS [Suspect]
     Active Substance: PEGINTERFERON ALFA-2A
     Indication: HEPATITIS C
     Route: 065
     Dates: start: 201206

REACTIONS (7)
  - Hepatitis C [Not Recovered/Not Resolved]
  - Headache [Recovered/Resolved]
  - Nausea [Recovered/Resolved]
  - Increased appetite [Not Recovered/Not Resolved]
  - Maternal exposure during pregnancy [Unknown]
  - Dry mouth [Recovered/Resolved]
  - Dysgeusia [Recovered/Resolved]

NARRATIVE: CASE EVENT DATE: 20120707
